FAERS Safety Report 24674875 (Version 4)
Quarter: 2025Q1

REPORT INFORMATION
  Report Type: Spontaneous
  Country: JP (occurrence: JP)
  Receive Date: 20241128
  Receipt Date: 20250124
  Transmission Date: 20250408
  Serious: Yes (Death, Other)
  Sender: ALEXION PHARMACEUTICALS
  Company Number: JP-ASTRAZENECA-240132881_013020_P_1

PATIENT
  Age: 88 Year
  Weight: 46 kg

DRUGS (29)
  1. OSIMERTINIB [Suspect]
     Active Substance: OSIMERTINIB
     Indication: Non-small cell lung cancer
     Dosage: 80 MILLIGRAM, QD
  2. OSIMERTINIB [Suspect]
     Active Substance: OSIMERTINIB
     Dosage: 40 MILLIGRAM, QOD
  3. HEPARINOID [Concomitant]
     Indication: Dry skin prophylaxis
  4. MINODRONIC ACID [Concomitant]
     Active Substance: MINODRONIC ACID
     Indication: Osteoporosis prophylaxis
  5. MINODRONIC ACID [Concomitant]
     Active Substance: MINODRONIC ACID
  6. MINODRONIC ACID [Concomitant]
     Active Substance: MINODRONIC ACID
  7. FAMOTIDINE [Concomitant]
     Active Substance: FAMOTIDINE
     Indication: Gastritis prophylaxis
  8. FAMOTIDINE [Concomitant]
     Active Substance: FAMOTIDINE
  9. FAMOTIDINE [Concomitant]
     Active Substance: FAMOTIDINE
  10. DIETARY SUPPLEMENT\PROBIOTICS [Concomitant]
     Active Substance: DIETARY SUPPLEMENT\PROBIOTICS NOS
     Indication: Prophylaxis against diarrhoea
  11. DIETARY SUPPLEMENT\PROBIOTICS [Concomitant]
     Active Substance: DIETARY SUPPLEMENT\PROBIOTICS NOS
  12. DIETARY SUPPLEMENT\PROBIOTICS [Concomitant]
     Active Substance: DIETARY SUPPLEMENT\PROBIOTICS NOS
  13. AMLODIPINE [Concomitant]
     Active Substance: AMLODIPINE BESYLATE
     Indication: Hypertension
  14. AMLODIPINE [Concomitant]
     Active Substance: AMLODIPINE BESYLATE
  15. AMLODIPINE [Concomitant]
     Active Substance: AMLODIPINE BESYLATE
  16. ROSUVASTATIN [Concomitant]
     Active Substance: ROSUVASTATIN
     Indication: Dyslipidaemia
  17. ROSUVASTATIN [Concomitant]
     Active Substance: ROSUVASTATIN
  18. ROSUVASTATIN [Concomitant]
     Active Substance: ROSUVASTATIN
  19. TELMISARTAN [Concomitant]
     Active Substance: TELMISARTAN
     Indication: Hypertension
  20. TELMISARTAN [Concomitant]
     Active Substance: TELMISARTAN
     Dosage: 20 MILLIGRAM
  21. TELMISARTAN [Concomitant]
     Active Substance: TELMISARTAN
     Dosage: 20 MILLIGRAM
  22. ELDECALCITOL [Concomitant]
     Active Substance: ELDECALCITOL
     Indication: Osteoporosis prophylaxis
  23. ELDECALCITOL [Concomitant]
     Active Substance: ELDECALCITOL
     Dosage: .75 MICROGRAM
  24. ELDECALCITOL [Concomitant]
     Active Substance: ELDECALCITOL
     Dosage: .75 MICROGRAM
  25. VILDAGLIPTIN [Concomitant]
     Active Substance: VILDAGLIPTIN
  26. VILDAGLIPTIN [Concomitant]
     Active Substance: VILDAGLIPTIN
     Indication: Diabetes mellitus
  27. VILDAGLIPTIN [Concomitant]
     Active Substance: VILDAGLIPTIN
  28. KETOPROFEN [Concomitant]
     Active Substance: KETOPROFEN
     Route: 065
  29. KETOPROFEN [Concomitant]
     Active Substance: KETOPROFEN
     Indication: Spinal osteoarthritis
     Route: 065

REACTIONS (4)
  - Cardiac tamponade [Fatal]
  - Atrioventricular block complete [Not Recovered/Not Resolved]
  - Decreased appetite [Recovered/Resolved]
  - Taste disorder [Recovered/Resolved]
